FAERS Safety Report 5624989-8 (Version None)
Quarter: 2008Q1

REPORT INFORMATION
  Report Type: 
  Country: None (occurrence: None)
  Receive Date: 20080213
  Receipt Date: 20080207
  Transmission Date: 20080703
  Serious: Yes (Hospitalization, Other)
  Sender: FDA-Public Use
  Company Number: ES-PFIZER INC-2007007671

PATIENT
  Sex: Male
  Weight: 124 kg

DRUGS (6)
  1. GENOTROPIN [Suspect]
     Indication: HYPOPITUITARISM
     Route: 058
     Dates: start: 20050524, end: 20060915
  2. PREDNISONE TAB [Concomitant]
     Route: 048
  3. CARDURA [Concomitant]
     Route: 048
  4. OMEPRAZOLE [Concomitant]
     Route: 048
  5. EUTIROX [Concomitant]
     Route: 048
  6. ENALAPRIL MALEATE AND HYDROCHLOROTHIAZIDE [Concomitant]
     Route: 048

REACTIONS (1)
  - PITUITARY TUMOUR RECURRENT [None]
